FAERS Safety Report 12169918 (Version 2)
Quarter: 2016Q2

REPORT INFORMATION
  Report Type: Spontaneous
  Country: CH (occurrence: CH)
  Receive Date: 20160310
  Receipt Date: 20160523
  Transmission Date: 20160815
  Serious: Yes (Death, Life-Threatening, Other)
  Sender: FDA-Public Use
  Company Number: CH-AMGEN-CHESP2016029555

PATIENT
  Age: 74 Year
  Sex: Female

DRUGS (3)
  1. KYPROLIS [Suspect]
     Active Substance: CARFILZOMIB
     Indication: PLASMA CELL MYELOMA
     Dosage: 25 MG, J1 AND 2, J8 AND 8, J 15 AND 16.
     Route: 042
     Dates: start: 20150818, end: 20151209
  2. BELOC-ZOC [Concomitant]
     Active Substance: METOPROLOL SUCCINATE
     Indication: CARDIAC FAILURE
     Dosage: UNK UNK, QD
     Dates: start: 20151218
  3. DEXAMETHASONE. [Concomitant]
     Active Substance: DEXAMETHASONE
     Indication: PLASMA CELL MYELOMA
     Dosage: 40 MG, QWK
     Dates: start: 20150818

REACTIONS (3)
  - Pulmonary oedema [Fatal]
  - Congestive cardiomyopathy [Fatal]
  - Pancytopenia [Unknown]

NARRATIVE: CASE EVENT DATE: 201512
